FAERS Safety Report 17519243 (Version 1)
Quarter: 2020Q1

REPORT INFORMATION
  Report Type: Spontaneous
  Country: DK (occurrence: DK)
  Receive Date: 20200309
  Receipt Date: 20200309
  Transmission Date: 20200409
  Serious: Yes (Hospitalization)
  Sender: FDA-Public Use
  Company Number: DK-MYLANLABS-2020M1024153

PATIENT
  Age: 77 Year
  Sex: Female

DRUGS (20)
  1. EPINEPHRINE. [Concomitant]
     Active Substance: EPINEPHRINE
     Indication: ANAPHYLACTIC SHOCK
     Dosage: UNK(DOSIS: 0.3 ML EFTER BEHOV H?JST 3 GANGE DAGLIG. STYRKE: 1 MG/ML)
     Dates: start: 20190308
  2. CETIRIZINE [Concomitant]
     Active Substance: CETIRIZINE HYDROCHLORIDE
     Indication: HYPERSENSITIVITY
     Dosage: 10 MILLIGRAM, QD(STYRKE: 10 MG.)
     Route: 048
     Dates: start: 20190629
  3. PIPERACILLIN AND TAZOBACTAM [Concomitant]
     Active Substance: PIPERACILLIN SODIUM\TAZOBACTAM SODIUM
     Indication: PNEUMONIA
     Dosage: 12.6 MILLILITER, QD(STYRKE: 4 G + 0.5 G)
  4. SODIUM PICOSULFATE [Concomitant]
     Active Substance: SODIUM PICOSULFATE
     Indication: PRODUCT USED FOR UNKNOWN INDICATION
     Dosage: UNK(DOSIS: UKENDT. STYRKE: UKENDT.)
  5. MYAMBUTOL [Suspect]
     Active Substance: ETHAMBUTOL HYDROCHLORIDE
     Indication: MYCOBACTERIUM AVIUM COMPLEX INFECTION
     Dosage: (STYRKE: 400 MG)
     Route: 048
     Dates: start: 20190826, end: 20191209
  6. CICLESONIDE [Concomitant]
     Active Substance: CICLESONIDE
     Indication: ASTHMA
     Dosage: 1 DOSAGE FORM, QD(STYRKE: 80 MIKROGRAM/DOSIS)
     Route: 055
     Dates: start: 20190702
  7. VENTOLINE                          /00139501/ [Concomitant]
     Active Substance: ALBUTEROL
     Indication: BRONCHOSPASM
     Dosage: 1 DOSAGE FORM, PRN(STYRKE: 0,1 MG/DOSIS)
     Route: 055
  8. AVAMYS [Concomitant]
     Active Substance: FLUTICASONE FUROATE
     Indication: RHINORRHOEA
     Dosage: 27.5 MICROGRAM, QD(STYRKE: 27.5 MIKROGRAM)
     Route: 045
     Dates: start: 20170331
  9. PARACETAMOL [Concomitant]
     Active Substance: ACETAMINOPHEN
     Indication: PAIN
     Dosage: 1000 MILLIGRAM, PRN(STYRKE: 500 MG.)
     Route: 048
     Dates: start: 20190701
  10. CALCIUM + VIT D [Concomitant]
     Active Substance: CALCIUM\VITAMIN D
     Indication: MINERAL SUPPLEMENTATION
     Dosage: (STYRKE: 400 MG + 19 MIKROGRAM.)
     Route: 048
     Dates: start: 20191121
  11. ALENDRONIC ACID [Concomitant]
     Active Substance: ALENDRONIC ACID
     Indication: OSTEOPOROSIS
     Dosage: 70 MILLIGRAM, QW(STYRKE: 70 MG.)
     Route: 048
     Dates: start: 20191123
  12. RIMACTAN                           /00146901/ [Suspect]
     Active Substance: RIFAMPIN
     Indication: MYCOBACTERIUM AVIUM COMPLEX INFECTION
     Dosage: (STYRKE: 150 MG)
     Route: 048
     Dates: start: 20190903, end: 20191209
  13. CLOPIDOGREL [Concomitant]
     Active Substance: CLOPIDOGREL BISULFATE
     Indication: THROMBOSIS PROPHYLAXIS
     Dosage: 75 MILLIGRAM, QD(STYRKE: 75 MG.)
     Route: 048
     Dates: start: 20190629
  14. SPIOLTO RESPIMAT [Concomitant]
     Active Substance: OLODATEROL HYDROCHLORIDE\TIOTROPIUM BROMIDE MONOHYDRATE
     Indication: CHRONIC OBSTRUCTIVE PULMONARY DISEASE
     Dosage: 2 DOSAGE FORM, QD(STYRKE: 2.5 + 2.5 MIKROGRAM)
     Route: 055
     Dates: start: 20191122
  15. AMLODIPINE [Concomitant]
     Active Substance: AMLODIPINE BESYLATE
     Indication: HYPERTENSION
     Dosage: 5 MILLIGRAM, QD(STYRKE: 5 MG.)
     Route: 048
     Dates: start: 20190629
  16. CLEMASTINE [Concomitant]
     Active Substance: CLEMASTINE
     Indication: ANAPHYLACTIC SHOCK
     Dosage: 1 DOSAGE FORM, PRN(STYRKE: 1 MG/ML)
     Dates: start: 20190308
  17. LACTULOSE. [Concomitant]
     Active Substance: LACTULOSE
     Indication: CONSTIPATION
     Dosage: 5 MILLILITER, PRN(STYRKE: 660 MG/ML)
     Route: 048
     Dates: start: 20191121
  18. COLECALCIFEROL [Concomitant]
     Active Substance: CHOLECALCIFEROL
     Indication: OSTEOPOROSIS
     Dosage: (STYRKE: 10 MIKROGRAM)
     Route: 048
     Dates: start: 20190923
  19. KLACID [Suspect]
     Active Substance: CLARITHROMYCIN
     Indication: MYCOBACTERIUM AVIUM COMPLEX INFECTION
     Dosage: (STYRKE: 500 MG)
     Route: 048
     Dates: start: 20190816, end: 20191209
  20. TRAMADOL. [Concomitant]
     Active Substance: TRAMADOL
     Indication: PAIN
     Dosage: 50 MILLIGRAM, PRN(STYRKE: 50 MG.)
     Route: 048
     Dates: start: 20190701

REACTIONS (3)
  - Sensory disturbance [Recovered/Resolved]
  - Muscle spasms [Recovered/Resolved]
  - Muscle twitching [Recovered/Resolved]

NARRATIVE: CASE EVENT DATE: 201911
